FAERS Safety Report 12784822 (Version 7)
Quarter: 2016Q4

REPORT INFORMATION
  Report Type: Report from Study
  Country: US (occurrence: US)
  Receive Date: 20160927
  Receipt Date: 20161220
  Transmission Date: 20170207
  Serious: Yes (Hospitalization, Other)
  Sender: FDA-Public Use
  Company Number: US-GILEAD-2016-0221510

PATIENT
  Age: 58 Year
  Sex: Female
  Weight: 47.17 kg

DRUGS (12)
  1. CHOLECALCIFEROL [Concomitant]
     Active Substance: CHOLECALCIFEROL
  2. SPIRONOLACTONE. [Concomitant]
     Active Substance: SPIRONOLACTONE
  3. AMBRISENTAN [Suspect]
     Active Substance: AMBRISENTAN
     Indication: PULMONARY HYPERTENSION
     Dosage: 10 MG, QD
     Route: 048
     Dates: start: 20160126
  4. AMIODARONE [Concomitant]
     Active Substance: AMIODARONE
  5. MAGNESIUM OXIDE. [Concomitant]
     Active Substance: MAGNESIUM OXIDE
  6. ADCIRCA [Concomitant]
     Active Substance: TADALAFIL
  7. SYNTHROID [Concomitant]
     Active Substance: LEVOTHYROXINE SODIUM
  8. CLINDAMYCIN. [Concomitant]
     Active Substance: CLINDAMYCIN
  9. OXYGEN. [Concomitant]
     Active Substance: OXYGEN
  10. AMBRISENTAN [Suspect]
     Active Substance: AMBRISENTAN
     Indication: HEART DISEASE CONGENITAL
  11. REMODULIN [Suspect]
     Active Substance: TREPROSTINIL
     Indication: PRODUCT USED FOR UNKNOWN INDICATION
     Dosage: UNK UNK, QOD
     Route: 042
  12. OMEPRAZOLE. [Concomitant]
     Active Substance: OMEPRAZOLE

REACTIONS (8)
  - Sepsis [Recovered/Resolved]
  - Thrombosis in device [Not Recovered/Not Resolved]
  - Wound complication [Unknown]
  - Infusion site warmth [Unknown]
  - Thrombosis in device [Recovered/Resolved]
  - Infusion site pain [Unknown]
  - Thrombosis [Not Recovered/Not Resolved]
  - Infusion site erythema [Unknown]

NARRATIVE: CASE EVENT DATE: 20160628
